FAERS Safety Report 14924722 (Version 1)
Quarter: 2018Q2

REPORT INFORMATION
  Report Type: Spontaneous
  Country: US (occurrence: US)
  Receive Date: 20180503
  Receipt Date: 20180503
  Transmission Date: 20180711
  Serious: Yes (Disabling)
  Sender: FDA-Public Use
  Company Number: None

PATIENT
  Age: 51 Year
  Sex: Female
  Weight: 96.75 kg

DRUGS (7)
  1. MULTIVITAMIN [Concomitant]
     Active Substance: VITAMINS
  2. VENLAFAXINE [Suspect]
     Active Substance: VENLAFAXINE HYDROCHLORIDE
     Indication: DEPRESSION
     Dates: start: 20150410, end: 20150531
  3. VENLAFAXINE [Suspect]
     Active Substance: VENLAFAXINE HYDROCHLORIDE
     Indication: SOCIAL ANXIETY DISORDER
     Dates: start: 20150410, end: 20150531
  4. XALATAN [Concomitant]
     Active Substance: LATANOPROST
  5. IBUPROFEN. [Concomitant]
     Active Substance: IBUPROFEN
  6. FLONASE (GENERIC) [Concomitant]
  7. TESTOSTERONE CREAM [Concomitant]
     Active Substance: TESTOSTERONE

REACTIONS (12)
  - Anger [None]
  - Insomnia [None]
  - Drug ineffective [None]
  - Product quality issue [None]
  - Inability to afford medication [None]
  - Depression [None]
  - Impaired work ability [None]
  - Product formulation issue [None]
  - Product substitution issue [None]
  - Eating disorder [None]
  - Anxiety [None]
  - Emotional disorder [None]

NARRATIVE: CASE EVENT DATE: 20150520
